FAERS Safety Report 12267269 (Version 1)
Quarter: 2016Q2

REPORT INFORMATION
  Report Type: Spontaneous
  Country: US (occurrence: None)
  Receive Date: 20160413
  Receipt Date: 20160413
  Transmission Date: 20160815
  Serious: No
  Sender: FDA-Public Use
  Company Number: None

PATIENT
  Age: 81 Year
  Sex: Male
  Weight: 90.27 kg

DRUGS (2)
  1. FLUTICASONE 50 MCG/INH [Suspect]
     Active Substance: FLUTICASONE\FLUTICASONE PROPIONATE
     Indication: PRODUCT USED FOR UNKNOWN INDICATION
     Route: 045
     Dates: start: 20160114, end: 20160124
  2. AZELASTINE 137MCG/INH [Suspect]
     Active Substance: AZELASTINE
     Indication: PRODUCT USED FOR UNKNOWN INDICATION
     Route: 045
     Dates: start: 20160114, end: 20160124

REACTIONS (2)
  - Drug ineffective [None]
  - Nasal discomfort [None]

NARRATIVE: CASE EVENT DATE: 20160124
